FAERS Safety Report 13827416 (Version 1)
Quarter: 2017Q3

REPORT INFORMATION
  Report Type: Spontaneous
  Country: US (occurrence: US)
  Receive Date: 20170802
  Receipt Date: 20170802
  Transmission Date: 20171127
  Serious: No
  Sender: FDA-Public Use
  Company Number: US-ROCHE-660491

PATIENT
  Age: 62 Year
  Sex: Female
  Weight: 67.1 kg

DRUGS (2)
  1. PREMPRO [Concomitant]
     Active Substance: ESTROGENS, CONJUGATED\MEDROXYPROGESTERONE ACETATE
     Indication: PRODUCT USED FOR UNKNOWN INDICATION
     Route: 065
  2. BONIVA [Suspect]
     Active Substance: IBANDRONATE SODIUM
     Indication: OSTEOPOROSIS
     Dosage: OTHER INDICATION: OSTEOPENIA
     Route: 048

REACTIONS (3)
  - Tooth fracture [Not Recovered/Not Resolved]
  - Bone density decreased [Unknown]
  - Toothache [Not Recovered/Not Resolved]

NARRATIVE: CASE EVENT DATE: 20091116
